FAERS Safety Report 9747772 (Version 1)
Quarter: 2013Q4

REPORT INFORMATION
  Report Type: Spontaneous
  Country: TR (occurrence: None)
  Receive Date: 20131206
  Receipt Date: 20131206
  Transmission Date: 20140711
  Serious: Yes (Hospitalization)
  Sender: FDA-Public Use
  Company Number: IPC201311-000488

PATIENT
  Age: 70 Year
  Sex: Male

DRUGS (1)
  1. WARFARIN (WARFARIN) (WARFARIN) [Suspect]

REACTIONS (3)
  - Back pain [None]
  - Haematoma [None]
  - International normalised ratio increased [None]
